FAERS Safety Report 9843470 (Version 1)
Quarter: 2013Q4

REPORT INFORMATION
  Report Type: Spontaneous
  Country: US (occurrence: None)
  Receive Date: 20131219
  Receipt Date: 20131219
  Transmission Date: 20140711
  Serious: Yes (Other)
  Sender: FDA-Public Use
  Company Number: 163-20785-13082168

PATIENT
  Age: 58 Year
  Sex: Female
  Weight: 98.9 kg

DRUGS (15)
  1. THALOMID (THALIDOMIDE) (50 MILLIGRAM, CAPSULES) [Suspect]
     Indication: PLASMA CELL MYELOMA
     Dosage: 1 IN 1 D
     Route: 048
     Dates: start: 200706
  2. CALCITRIOL [Concomitant]
  3. VIGAMOX [Concomitant]
  4. KLOR-CON [Concomitant]
  5. WARFARIN SODIUM [Concomitant]
  6. NYSTOP [Concomitant]
  7. BESIVANCE [Concomitant]
  8. METOPROLOL TARTRATE [Concomitant]
  9. FLECAINIDE ACETATE [Concomitant]
  10. DEXAMETHASONE [Concomitant]
  11. MAGNESIUM [Concomitant]
  12. SYNTHROID [Concomitant]
  13. OYSTER SHELL CALCIUM [Concomitant]
  14. ACYCLOVIR [Concomitant]
  15. VITAMIN D [Concomitant]

REACTIONS (1)
  - Deep vein thrombosis [None]
